FAERS Safety Report 25751260 (Version 1)
Quarter: 2025Q3

REPORT INFORMATION
  Report Type: Spontaneous
  Country: EU (occurrence: EU)
  Receive Date: 20250902
  Receipt Date: 20250902
  Transmission Date: 20251021
  Serious: Yes (Life-Threatening)
  Sender: MYLAN
  Company Number: None

PATIENT
  Age: 83 Year
  Sex: Male
  Weight: 92 kg

DRUGS (8)
  1. SPIRONOLACTONE [Suspect]
     Active Substance: SPIRONOLACTONE
     Indication: Hypertension
     Dosage: 25 MILLIGRAM, BID (1-0-1)
  2. MANIDIPINE [Suspect]
     Active Substance: MANIDIPINE
     Indication: Hypertension
     Dosage: 20 MILLIGRAM, QD (1-0-0)
  3. BISOPROLOL [Suspect]
     Active Substance: BISOPROLOL
     Indication: Hypertension
     Dosage: 7.5 MILLIGRAM, QD (5MG-0-2.5 MG)
  4. XARELTO [Suspect]
     Active Substance: RIVAROXABAN
     Indication: Atrial fibrillation
     Dosage: 15 MILLIGRAM, QD (0-0-1)
     Dates: start: 2017
  5. ENTRESTO [Suspect]
     Active Substance: SACUBITRIL\VALSARTAN
     Indication: Hypertension
     Dosage: 200 MILLIGRAM, QD (1-0-1)
  6. ALTHIAZIDE [Suspect]
     Active Substance: ALTHIAZIDE
     Indication: Hypertension
     Dosage: 15 MILLIGRAM, BID (1-0-1)
  7. FEBUXOSTAT [Concomitant]
     Active Substance: FEBUXOSTAT
  8. DAPAGLIFLOZIN [Concomitant]
     Active Substance: DAPAGLIFLOZIN

REACTIONS (2)
  - Haemorrhage [Recovering/Resolving]
  - Distributive shock [Recovering/Resolving]

NARRATIVE: CASE EVENT DATE: 20250801
